FAERS Safety Report 8507683-5 (Version None)
Quarter: 2012Q3

REPORT INFORMATION
  Report Type: 
  Country: None (occurrence: None)
  Receive Date: 20120713
  Receipt Date: 20120706
  Transmission Date: 20120928
  Serious: Yes (Hospitalization)
  Sender: FDA-Public Use
  Company Number: DE-009507513-1207DEU002888

PATIENT

DRUGS (1)
  1. ZOELY [Suspect]

REACTIONS (1)
  - EPILEPSY [None]
